FAERS Safety Report 8258234-4 (Version None)
Quarter: 2012Q2

REPORT INFORMATION
  Report Type: 
  Country: None (occurrence: None)
  Receive Date: 20120404
  Receipt Date: 20120328
  Transmission Date: 20120825
  Serious: Yes (Other)
  Sender: FDA-Public Use
  Company Number: JP-VERTEX PHARMACEUTICALS INC.-AE-2012-004624

PATIENT
  Age: 42 Year
  Sex: Male

DRUGS (9)
  1. REBETOL [Concomitant]
     Route: 048
     Dates: start: 20120229
  2. REBETOL [Concomitant]
     Indication: HEPATITIS C
     Route: 048
     Dates: start: 20120126, end: 20120228
  3. AMOBAN [Concomitant]
  4. LENDORMIN [Concomitant]
  5. ANTEBATE OINTMENT [Concomitant]
  6. PEGINTERFERON [Concomitant]
     Indication: HEPATITIS C
     Route: 058
     Dates: start: 20120126
  7. TELAVIC (TELAPREVIR) [Suspect]
     Indication: HEPATITIS C
     Route: 048
     Dates: start: 20120126
  8. LOXONIN [Concomitant]
  9. MUCOSTA [Concomitant]

REACTIONS (4)
  - HAEMOGLOBIN DECREASED [None]
  - ERYTHEMA MULTIFORME [None]
  - PRURITUS [None]
  - GASTROINTESTINAL DISORDER [None]
